FAERS Safety Report 8305174-8 (Version None)
Quarter: 2012Q2

REPORT INFORMATION
  Report Type: 
  Country: None (occurrence: None)
  Receive Date: 20120423
  Receipt Date: 20120413
  Transmission Date: 20120825
  Serious: Yes (Hospitalization)
  Sender: FDA-Public Use
  Company Number: BR-ASTRAZENECA-2012SE24833

PATIENT
  Age: 72 Year
  Sex: Male
  Weight: 57 kg

DRUGS (8)
  1. SOMALGIN [Concomitant]
     Route: 048
  2. BETASERC [Concomitant]
     Indication: LABYRINTHITIS
     Route: 048
     Dates: end: 20120401
  3. CRESTOR [Suspect]
     Route: 048
  4. METFORMIN HCL [Concomitant]
     Route: 048
  5. CRESTOR [Suspect]
     Indication: HYPERCHOLESTEROLAEMIA
     Route: 048
     Dates: end: 20120301
  6. CEDUR RETARD [Concomitant]
     Route: 048
  7. CRESTOR [Suspect]
     Route: 048
     Dates: start: 20100301, end: 20120411
  8. DUOMO [Concomitant]
     Indication: PROSTATIC DISORDER
     Route: 048

REACTIONS (1)
  - AORTIC THROMBOSIS [None]
